FAERS Safety Report 12958231 (Version 1)
Quarter: 2016Q4

REPORT INFORMATION
  Report Type: Report from Study
  Country: IT (occurrence: IT)
  Receive Date: 20161120
  Receipt Date: 20161120
  Transmission Date: 20170207
  Serious: Yes (Hospitalization)
  Sender: FDA-Public Use
  Company Number: IT-MYLANLABS-2016M1050108

PATIENT

DRUGS (7)
  1. FLUOXETINE [Suspect]
     Active Substance: FLUOXETINE HYDROCHLORIDE
     Indication: PRODUCT USED FOR UNKNOWN INDICATION
     Dosage: 560 MG, TOTAL
     Route: 048
     Dates: start: 20160918, end: 20160918
  2. FLURAZEPAM [Suspect]
     Active Substance: FLURAZEPAM\FLURAZEPAM HYDROCHLORIDE
     Indication: PRODUCT USED FOR UNKNOWN INDICATION
     Dosage: 450 MG, TOTAL
     Route: 048
     Dates: start: 20160918, end: 20160918
  3. NEBIVOLOL. [Suspect]
     Active Substance: NEBIVOLOL
     Indication: PRODUCT USED FOR UNKNOWN INDICATION
     Dosage: 70 MG, TOTAL
     Route: 048
     Dates: start: 20160918, end: 20160918
  4. DOXAZOSIN [Suspect]
     Active Substance: DOXAZOSIN\DOXAZOSIN MESYLATE
     Indication: PRODUCT USED FOR UNKNOWN INDICATION
     Dosage: 80 MG, TOTAL
     Route: 048
     Dates: start: 20160918, end: 20160918
  5. TRITTICO [Suspect]
     Active Substance: TRAZODONE HYDROCHLORIDE
     Indication: PRODUCT USED FOR UNKNOWN INDICATION
     Dosage: 750 MG, TOTAL
     Route: 048
     Dates: start: 20160918, end: 20160918
  6. LACIREX [Suspect]
     Active Substance: LACIDIPINE
     Indication: PRODUCT USED FOR UNKNOWN INDICATION
     Dosage: 42 MG, TOTAL
     Dates: start: 20160918, end: 20160918
  7. HYDROCHLOROTHIAZIDE/LOSARTAN [Suspect]
     Active Substance: HYDROCHLOROTHIAZIDE\LOSARTAN
     Indication: PRODUCT USED FOR UNKNOWN INDICATION
     Dosage: 28 DF, TOTAL
     Route: 048
     Dates: start: 20160918, end: 20160918

REACTIONS (3)
  - Drug abuse [Recovered/Resolved]
  - Suicide attempt [Recovered/Resolved]
  - Hypotension [Recovered/Resolved]

NARRATIVE: CASE EVENT DATE: 20160918
